FAERS Safety Report 10900547 (Version 1)
Quarter: 2015Q1

REPORT INFORMATION
  Report Type: Spontaneous
  Country: US (occurrence: US)
  Receive Date: 20150310
  Receipt Date: 20150310
  Transmission Date: 20150721
  Serious: Yes (Hospitalization, Other)
  Sender: FDA-Public Use
  Company Number: US-AMGEN-USASP2015020105

PATIENT
  Age: 73 Year
  Sex: Female

DRUGS (5)
  1. HUMIRA [Concomitant]
     Active Substance: ADALIMUMAB
     Dosage: UNK
     Dates: start: 201410
  2. PREDNISONE. [Concomitant]
     Active Substance: PREDNISONE
     Dosage: 60 MG, UNK
  3. PROLIA [Suspect]
     Active Substance: DENOSUMAB
     Indication: RHEUMATOID ARTHRITIS
     Dosage: UNK
     Route: 065
     Dates: start: 201408
  4. REMICADE [Concomitant]
     Active Substance: INFLIXIMAB
     Dosage: UNK
  5. D3 [Concomitant]
     Active Substance: 25-HYDROXYCHOLECALCIFEROL, 5-TRANS-
     Dosage: UNK

REACTIONS (7)
  - Wound infection [Unknown]
  - Skin ulcer [Unknown]
  - Cellulitis staphylococcal [Unknown]
  - Hypersensitivity [Unknown]
  - Product use issue [Unknown]
  - Arthritis [Unknown]
  - Corneal disorder [Unknown]
